FAERS Safety Report 7732264-0 (Version None)
Quarter: 2011Q3

REPORT INFORMATION
  Report Type: 
  Country: None (occurrence: None)
  Receive Date: 20110906
  Receipt Date: 20110826
  Transmission Date: 20111222
  Serious: Yes (Other)
  Sender: FDA-Public Use
  Company Number: US-ELI_LILLY_AND_COMPANY-US201108008915

PATIENT
  Sex: Male

DRUGS (1)
  1. HUMATROPE [Suspect]
     Indication: CRANIOPHARYNGIOMA
     Dosage: 1.4 MG, BID
     Route: 065

REACTIONS (3)
  - UNDERDOSE [None]
  - BRAIN NEOPLASM [None]
  - INCORRECT DOSE ADMINISTERED [None]
